FAERS Safety Report 5899716-X (Version None)
Quarter: 2008Q3

REPORT INFORMATION
  Report Type: 
  Country: None (occurrence: None)
  Receive Date: 20080926
  Receipt Date: 20080922
  Transmission Date: 20090109
  Serious: Yes (Hospitalization, Disabling)
  Sender: FDA-Public Use
  Company Number: US-SP-2008-00950

PATIENT
  Age: 15 Year
  Sex: Female

DRUGS (7)
  1. ADACEL [Suspect]
     Indication: IMMUNISATION
     Route: 030
     Dates: start: 20080327
  2. ADACEL [Suspect]
     Route: 030
     Dates: start: 20080327
  3. MENACTRA [Suspect]
     Indication: IMMUNISATION
     Route: 030
     Dates: start: 20080327
  4. MENACTRA [Suspect]
     Route: 030
     Dates: start: 20080327
  5. TUBERSOL [Suspect]
     Indication: TUBERCULIN TEST
     Route: 023
     Dates: start: 20080327
  6. TUBERSOL [Suspect]
     Route: 023
     Dates: start: 20080327
  7. HEPATITIS A [Suspect]
     Indication: IMMUNISATION
     Route: 030
     Dates: start: 20080327

REACTIONS (17)
  - ARTHRALGIA [None]
  - CHEST PAIN [None]
  - DYSGEUSIA [None]
  - DYSPNOEA [None]
  - FACE OEDEMA [None]
  - FACIAL PALSY [None]
  - FATIGUE [None]
  - FOOD ALLERGY [None]
  - GAIT DISTURBANCE [None]
  - HYPOAESTHESIA [None]
  - MUSCLE SPASMS [None]
  - MUSCULAR WEAKNESS [None]
  - MUSCULOSKELETAL STIFFNESS [None]
  - OEDEMA PERIPHERAL [None]
  - PARAESTHESIA [None]
  - PERONEAL NERVE PALSY [None]
  - TYPE I HYPERSENSITIVITY [None]
